FAERS Safety Report 8883272 (Version 3)
Quarter: 2012Q4

REPORT INFORMATION
  Report Type: Report from Study
  Country: CZ (occurrence: CZ)
  Receive Date: 20121102
  Receipt Date: 20121106
  Transmission Date: 20130627
  Serious: Yes (Disabling)
  Sender: FDA-Public Use
  Company Number: CZ-ROCHE-1151914

PATIENT
  Age: 50 Year
  Sex: Male
  Weight: 112 kg

DRUGS (5)
  1. VEMURAFENIB [Suspect]
     Indication: MALIGNANT MELANOMA
     Dosage: last dose prior to SAE on 24/oct/2012
     Route: 048
     Dates: start: 20120116
  2. FLAREX [Concomitant]
     Route: 047
     Dates: start: 20120806, end: 20121024
  3. MAXITROL [Concomitant]
     Route: 047
     Dates: start: 20120307, end: 20120805
  4. EUTHYROX [Concomitant]
     Route: 065
     Dates: start: 201201, end: 201204
  5. ATROPIN [Concomitant]
     Route: 065
     Dates: start: 20121025

REACTIONS (1)
  - Cataract [Not Recovered/Not Resolved]
